FAERS Safety Report 9472490 (Version 2)
Quarter: 2013Q3

REPORT INFORMATION
  Report Type: Report from Study
  Country: US (occurrence: US)
  Receive Date: 20130823
  Receipt Date: 20130823
  Transmission Date: 20140515
  Serious: Yes (Other)
  Sender: FDA-Public Use
  Company Number: PHEH2012US012281

PATIENT
  Sex: Female

DRUGS (8)
  1. TASIGNA [Suspect]
     Indication: CHRONIC MYELOID LEUKAEMIA
     Dosage: 400 MG, BID
     Route: 048
  2. ZOFRAN [Concomitant]
     Dosage: 8 MG, UNK
     Route: 048
  3. IMODIUM A-D [Concomitant]
     Dosage: 2 MG, UNK
  4. VALIUM [Concomitant]
     Dosage: 10 MG, UNK
     Route: 048
  5. TEM [Concomitant]
  6. MOTRIN [Concomitant]
     Dosage: 100 MG, UNK
     Route: 048
  7. PROVIGIL [Concomitant]
     Dosage: 100 MG, UNK
     Route: 048
  8. RANITIDINE [Concomitant]
     Dosage: 75 MG, UNK
     Route: 048

REACTIONS (1)
  - Pancreatitis acute [Unknown]
